FAERS Safety Report 25540168 (Version 2)
Quarter: 2025Q3

REPORT INFORMATION
  Report Type: Spontaneous
  Country: EU (occurrence: EU)
  Receive Date: 20250710
  Receipt Date: 20250729
  Transmission Date: 20251021
  Serious: Yes (Death)
  Sender: AMGEN
  Company Number: None

PATIENT
  Age: 48 Year
  Sex: Female
  Weight: 49 kg

DRUGS (1)
  1. MVASI [Suspect]
     Active Substance: BEVACIZUMAB-AWWB
     Indication: Ovarian cancer
     Route: 040
     Dates: start: 20241112, end: 20250617

REACTIONS (3)
  - Brain oedema [Fatal]
  - Coma [Fatal]
  - Posterior reversible encephalopathy syndrome [Fatal]

NARRATIVE: CASE EVENT DATE: 20250620
